FAERS Safety Report 25461804 (Version 1)
Quarter: 2025Q2

REPORT INFORMATION
  Report Type: Spontaneous
  Country: US (occurrence: US)
  Receive Date: 20250620
  Receipt Date: 20250620
  Transmission Date: 20250716
  Serious: Yes (Other)
  Sender: INNOGENIX, LLC
  Company Number: US-Innogenix, LLC-2179073

PATIENT

DRUGS (1)
  1. METOLAZONE [Suspect]
     Active Substance: METOLAZONE
     Indication: Product used for unknown indication

REACTIONS (1)
  - Seizure [Unknown]
